FAERS Safety Report 10145864 (Version 1)
Quarter: 2014Q2

REPORT INFORMATION
  Report Type: Report from Study
  Country: US (occurrence: US)
  Receive Date: 20140501
  Receipt Date: 20140501
  Transmission Date: 20141212
  Serious: No
  Sender: FDA-Public Use
  Company Number: US-ABBVIE-13P-163-1101358-00

PATIENT
  Sex: Female

DRUGS (1)
  1. PANCREON [Suspect]
     Indication: PANCREATIC INSUFFICIENCY

REACTIONS (4)
  - Drug ineffective [Unknown]
  - Abdominal discomfort [Unknown]
  - Abdominal discomfort [Unknown]
  - Alopecia [Unknown]
